FAERS Safety Report 22663941 (Version 6)
Quarter: 2024Q3

REPORT INFORMATION
  Report Type: Spontaneous
  Country: US (occurrence: US)
  Receive Date: 20230703
  Receipt Date: 20240702
  Transmission Date: 20241016
  Serious: Yes (Other)
  Sender: BRISTOL MYERS SQUIBB
  Company Number: US-BRISTOL-MYERS SQUIBB COMPANY-2023-092362

PATIENT
  Age: 62 Year
  Sex: Female
  Weight: 62.6 kg

DRUGS (2)
  1. REVLIMID [Suspect]
     Active Substance: LENALIDOMIDE
     Indication: Plasma cell myeloma
     Dosage: FREQUENCY: 3 WEEKS ON 1 WEEK OFF
     Route: 048
     Dates: start: 20230101
  2. REVLIMID [Suspect]
     Active Substance: LENALIDOMIDE
     Dosage: FREQUENCY: ONCE DAILY FOR 21 DAYS
     Route: 048

REACTIONS (6)
  - Diarrhoea [Recovering/Resolving]
  - Paraesthesia [Unknown]
  - Cholelithiasis [Unknown]
  - Fatigue [Recovering/Resolving]
  - Off label use [Unknown]
  - Dizziness [Unknown]
